FAERS Safety Report 5045614-3 (Version None)
Quarter: 2006Q3

REPORT INFORMATION
  Report Type: 
  Country: None (occurrence: None)
  Receive Date: 20060707
  Receipt Date: 20060517
  Transmission Date: 20061208
  Serious: Yes (Hospitalization)
  Sender: FDA-Public Use
  Company Number: JP-ABBOTT-06P-087-0333434-00

PATIENT
  Sex: Male
  Weight: 10 kg

DRUGS (11)
  1. CEFZON [Suspect]
     Indication: UPPER RESPIRATORY TRACT INFLAMMATION
     Route: 048
     Dates: start: 20060507, end: 20060510
  2. CEFZON [Suspect]
     Indication: PYREXIA
  3. ANHIBA [Suspect]
     Indication: UPPER RESPIRATORY TRACT INFLAMMATION
     Route: 054
     Dates: start: 20060501, end: 20060501
  4. ANHIBA [Suspect]
     Route: 054
     Dates: start: 20060502, end: 20060508
  5. ZITHROMAX [Suspect]
     Indication: UPPER RESPIRATORY TRACT INFLAMMATION
     Route: 048
     Dates: start: 20060502, end: 20060504
  6. ACETYLCYSTEINE [Concomitant]
     Indication: DRUG USE FOR UNKNOWN INDICATION
  7. TIPEPIDINE HIBENZATE [Concomitant]
     Indication: DRUG USE FOR UNKNOWN INDICATION
  8. MEQUITAZINE [Concomitant]
     Indication: DRUG USE FOR UNKNOWN INDICATION
  9. STREPTOCOCCUS FAECALIS [Concomitant]
     Indication: DRUG USE FOR UNKNOWN INDICATION
  10. TULOBUTEROL HYDROCHLORIDE [Concomitant]
     Indication: DRUG USE FOR UNKNOWN INDICATION
  11. STREPTOCOCCUS FAECALIS [Concomitant]

REACTIONS (7)
  - ASTHENIA [None]
  - CHROMATURIA [None]
  - HAEMATOCHEZIA [None]
  - HAEMOLYTIC ANAEMIA [None]
  - OCULAR ICTERUS [None]
  - PALLOR [None]
  - PYREXIA [None]
